FAERS Safety Report 25937135 (Version 1)
Quarter: 2025Q4

REPORT INFORMATION
  Report Type: Spontaneous
  Country: EU (occurrence: EU)
  Receive Date: 20251017
  Receipt Date: 20251017
  Transmission Date: 20260119
  Serious: Yes (Hospitalization)
  Sender: TEVA
  Company Number: None

PATIENT
  Age: 94 Year
  Sex: Female
  Weight: 39 kg

DRUGS (1)
  1. BUPRENORPHINE [Suspect]
     Active Substance: BUPRENORPHINE
     Indication: Arthralgia
     Dosage: PATCH 1 EVERY 72 HOURS: 35 MICROGRAMS/H (72 HOURS)
     Route: 062
     Dates: start: 20250812, end: 20250813

REACTIONS (3)
  - Vomiting [Recovered/Resolved]
  - Prerenal failure [Recovered/Resolved]
  - Acute kidney injury [Recovered/Resolved]

NARRATIVE: CASE EVENT DATE: 20250813
